FAERS Safety Report 9845674 (Version 1)
Quarter: 2014Q1

REPORT INFORMATION
  Report Type: Spontaneous
  Country: US (occurrence: None)
  Receive Date: 20140122
  Receipt Date: 20140122
  Transmission Date: 20141002
  Serious: Yes (Other)
  Sender: FDA-Public Use
  Company Number: SYM-2014-14932

PATIENT
  Age: 44 Year
  Sex: Male

DRUGS (1)
  1. BUPROPION [Suspect]
     Indication: DEPRESSION
     Dosage: 300MG, 7 IN 1 D INTRANASAL

REACTIONS (5)
  - Drug abuse [None]
  - Wrong technique in drug usage process [None]
  - Incorrect route of drug administration [None]
  - Decreased appetite [None]
  - Paranoia [None]
